FAERS Safety Report 6040200-0 (Version None)
Quarter: 2009Q1

REPORT INFORMATION
  Report Type: 
  Country: None (occurrence: None)
  Receive Date: 20090116
  Receipt Date: 20080417
  Transmission Date: 20090719
  Serious: No
  Sender: FDA-Public Use
  Company Number: US-BRISTOL-MYERS SQUIBB COMPANY-14038012

PATIENT

DRUGS (1)
  1. ABILIFY [Suspect]

REACTIONS (4)
  - BLOOD TRIGLYCERIDES ABNORMAL [None]
  - DIABETES MELLITUS [None]
  - GENERAL PHYSICAL CONDITION ABNORMAL [None]
  - RASH [None]
